FAERS Safety Report 9418877 (Version 1)
Quarter: 2013Q3

REPORT INFORMATION
  Report Type: Report from Study
  Country: CA (occurrence: CA)
  Receive Date: 20130725
  Receipt Date: 20130725
  Transmission Date: 20140515
  Serious: Yes (Hospitalization)
  Sender: FDA-Public Use
  Company Number: CA-JNJFOC-20130714347

PATIENT
  Age: 59 Year
  Sex: Female
  Weight: 64.8 kg

DRUGS (4)
  1. REMICADE [Suspect]
     Indication: CROHN^S DISEASE
     Route: 042
  2. VIOKASE [Concomitant]
     Route: 065
  3. CELEXA [Concomitant]
     Route: 065
  4. IMOVANE [Concomitant]
     Route: 065

REACTIONS (2)
  - Gastrointestinal ulcer haemorrhage [Unknown]
  - Haemoglobin decreased [Unknown]
